FAERS Safety Report 10230629 (Version 1)
Quarter: 2014Q2

REPORT INFORMATION
  Report Type: Report from Study
  Country: BR (occurrence: BR)
  Receive Date: 20140611
  Receipt Date: 20140611
  Transmission Date: 20141212
  Serious: Yes (Hospitalization)
  Sender: FDA-Public Use
  Company Number: BR-ABBVIE-14K-020-1245045-00

PATIENT
  Age: 7 Month
  Sex: Female
  Weight: 5.26 kg

DRUGS (7)
  1. SYNAGIS [Suspect]
     Indication: PREMATURE BABY
     Route: 030
     Dates: start: 20140424, end: 20140424
  2. SYNAGIS [Suspect]
     Route: 030
     Dates: start: 20140529, end: 20140529
  3. MULTIVITAMINS [Concomitant]
     Indication: VITAMIN SUPPLEMENTATION
     Route: 048
     Dates: start: 20140131
  4. ADDERA D3 [Concomitant]
     Indication: VITAMIN SUPPLEMENTATION
     Route: 048
     Dates: start: 201404
  5. NORIPURUM [Concomitant]
     Indication: ANAEMIA PROPHYLAXIS
     Route: 048
     Dates: start: 20140131
  6. SALINE [Concomitant]
     Indication: DYSPNOEA
     Route: 055
     Dates: start: 20140131
  7. SALINE [Concomitant]
     Route: 045
     Dates: start: 20140131

REACTIONS (6)
  - Influenza [Recovered/Resolved]
  - Secretion discharge [Recovered/Resolved]
  - Fatigue [Recovered/Resolved]
  - Insomnia [Recovered/Resolved]
  - Pneumonia [Recovered/Resolved]
  - Cough [Unknown]
